FAERS Safety Report 11656301 (Version 4)
Quarter: 2016Q1

REPORT INFORMATION
  Report Type: Report from Study
  Country: US (occurrence: US)
  Receive Date: 20151023
  Receipt Date: 20160211
  Transmission Date: 20160525
  Serious: Yes (Hospitalization)
  Sender: FDA-Public Use
  Company Number: US-EISAI MEDICAL RESEARCH-EC-2015-010748

PATIENT
  Age: 76 Year
  Sex: Male
  Weight: 75 kg

DRUGS (17)
  1. LENVIMA [Suspect]
     Active Substance: LENVATINIB
     Indication: THYROID CANCER
     Route: 048
     Dates: start: 20150910, end: 2015
  2. VITAMIN C [Concomitant]
     Active Substance: ASCORBIC ACID
  3. NORTRYPTYLINE [Concomitant]
  4. NEXAVAR [Concomitant]
     Active Substance: SORAFENIB
  5. LENVIMA [Suspect]
     Active Substance: LENVATINIB
     Route: 048
     Dates: start: 20151008, end: 2016
  6. VITAMIN D3 [Concomitant]
     Active Substance: CHOLECALCIFEROL
  7. LOMOTIL [Concomitant]
     Active Substance: ATROPINE SULFATE\DIPHENOXYLATE HYDROCHLORIDE
  8. SYNTHROID [Concomitant]
     Active Substance: LEVOTHYROXINE SODIUM
  9. LISINOPRIL. [Concomitant]
     Active Substance: LISINOPRIL
  10. LIPITOR [Concomitant]
     Active Substance: ATORVASTATIN CALCIUM
  11. PLAQUENIL [Concomitant]
     Active Substance: HYDROXYCHLOROQUINE SULFATE
  12. IMODIUM [Concomitant]
     Active Substance: LOPERAMIDE HYDROCHLORIDE
  13. TOVIAZ [Concomitant]
     Active Substance: FESOTERODINE FUMARATE
  14. FLOMAX [Concomitant]
     Active Substance: TAMSULOSIN HYDROCHLORIDE
  15. VITAMIN B12 [Concomitant]
     Active Substance: CYANOCOBALAMIN
  16. MULTIVITAMIN [Concomitant]
     Active Substance: VITAMINS
  17. PROLIXIN [Concomitant]
     Active Substance: FLUPHENAZINE HYDROCHLORIDE

REACTIONS (12)
  - Renal impairment [Unknown]
  - Asthenia [Recovering/Resolving]
  - Diarrhoea [Unknown]
  - Blood pressure increased [Unknown]
  - Blood potassium decreased [Recovered/Resolved]
  - Abdominal infection [Unknown]
  - Blood pressure fluctuation [Unknown]
  - Dehydration [Recovering/Resolving]
  - Heart rate irregular [Unknown]
  - Decreased appetite [Recovering/Resolving]
  - Blood magnesium decreased [Recovered/Resolved]
  - Fatigue [Unknown]

NARRATIVE: CASE EVENT DATE: 2015
